FAERS Safety Report 10530629 (Version 1)
Quarter: 2014Q4

REPORT INFORMATION
  Report Type: Spontaneous
  Country: US (occurrence: None)
  Receive Date: 20141020
  Receipt Date: 20141020
  Transmission Date: 20150528
  Serious: Yes (Other)
  Sender: FDA-Public Use
  Company Number: None

PATIENT
  Age: 69 Year
  Sex: Female
  Weight: 54.43 kg

DRUGS (1)
  1. ADDERALL [Suspect]
     Active Substance: AMPHETAMINE ASPARTATE\AMPHETAMINE SULFATE\DEXTROAMPHETAMINE SACCHARATE\DEXTROAMPHETAMINE SULFATE
     Indication: ATTENTION DEFICIT/HYPERACTIVITY DISORDER
     Route: 048
     Dates: start: 20140911, end: 20141004

REACTIONS (26)
  - Cognitive disorder [None]
  - Confusional state [None]
  - No therapeutic response [None]
  - Nausea [None]
  - Tremor [None]
  - Fatigue [None]
  - Hypoaesthesia [None]
  - Discomfort [None]
  - Gait disturbance [None]
  - Sleep disorder [None]
  - Irritability [None]
  - Diarrhoea [None]
  - Memory impairment [None]
  - Frustration [None]
  - Therapeutic response changed [None]
  - Neck pain [None]
  - Feeling abnormal [None]
  - Product substitution issue [None]
  - Body temperature increased [None]
  - Hyperhidrosis [None]
  - Somnolence [None]
  - Coordination abnormal [None]
  - Disturbance in attention [None]
  - Paraesthesia [None]
  - Pain [None]
  - Listless [None]

NARRATIVE: CASE EVENT DATE: 20140911
